FAERS Safety Report 12161796 (Version 1)
Quarter: 2016Q1

REPORT INFORMATION
  Report Type: Spontaneous
  Country: US (occurrence: US)
  Receive Date: 20160309
  Receipt Date: 20160309
  Transmission Date: 20160526
  Serious: No
  Sender: FDA-Public Use
  Company Number: US-TEVA-581250USA

PATIENT
  Sex: Female
  Weight: 90.8 kg

DRUGS (1)
  1. TOPIRAMATE. [Suspect]
     Active Substance: TOPIRAMATE
     Indication: MIGRAINE
     Dates: start: 20150715

REACTIONS (3)
  - Hypoaesthesia [Unknown]
  - Eye pain [Unknown]
  - Headache [Unknown]
